FAERS Safety Report 15223295 (Version 1)
Quarter: 2018Q3

REPORT INFORMATION
  Report Type: Spontaneous
  Country: US (occurrence: US)
  Receive Date: 20180705
  Receipt Date: 20180705
  Transmission Date: 20181010
  Serious: Yes (Other)
  Sender: FDA-Public Use
  Company Number: None

PATIENT
  Sex: Male

DRUGS (5)
  1. BUT/APAP/CAF [Concomitant]
  2. DULOXETINE. [Concomitant]
     Active Substance: DULOXETINE
  3. FOLIC ACID. [Concomitant]
     Active Substance: FOLIC ACID
  4. STELARA [Suspect]
     Active Substance: USTEKINUMAB
     Indication: PSORIATIC ARTHROPATHY
     Dosage: 45 MG Q  3 MONTHS
     Route: 058
     Dates: start: 20170921
  5. CYCLOBENZAPR [Concomitant]
     Active Substance: CYCLOBENZAPRINE

REACTIONS (2)
  - Insomnia [None]
  - Drug ineffective [None]
